FAERS Safety Report 10650785 (Version 2)
Quarter: 2014Q4

REPORT INFORMATION
  Report Type: Report from Study
  Country: US (occurrence: US)
  Receive Date: 20141215
  Receipt Date: 20141215
  Transmission Date: 20150529
  Serious: Yes (Hospitalization, Other)
  Sender: FDA-Public Use
  Company Number: US-ROCHE-GNE320674

PATIENT
  Sex: Female

DRUGS (1)
  1. NUTROPIN AQ [Suspect]
     Active Substance: SOMATROPIN
     Indication: PRODUCT USED FOR UNKNOWN INDICATION
     Route: 065
     Dates: start: 201102

REACTIONS (4)
  - Adrenocortical insufficiency acute [Recovering/Resolving]
  - Malaise [Not Recovered/Not Resolved]
  - Urticaria [Unknown]
  - Rash [Recovering/Resolving]
